FAERS Safety Report 7427889-6 (Version None)
Quarter: 2011Q2

REPORT INFORMATION
  Report Type: 
  Country: None (occurrence: None)
  Receive Date: 20110413
  Receipt Date: 20101122
  Transmission Date: 20111010
  Serious: Yes (Hospitalization)
  Sender: FDA-Public Use
  Company Number: B0581925A

PATIENT
  Age: 48 Year
  Sex: Female

DRUGS (6)
  1. AMOXICILLIN AND CLAVULANATE POTASSIUM [Concomitant]
  2. PARACETAMOL [Concomitant]
  3. IBUPROFEN [Suspect]
     Dosage: 400 MG / TWICE PER DAY / ORAL
  4. DICLOFENAC [Concomitant]
  5. CIPROFLOXACIN [Suspect]
  6. RANITIDINE HYDROCHLORIDE [Suspect]
     Dosage: 300 MG / ORAL
     Route: 048

REACTIONS (10)
  - MENINGITIS ASEPTIC [None]
  - TINNITUS [None]
  - AREFLEXIA [None]
  - ATAXIA [None]
  - NYSTAGMUS [None]
  - TYPE III IMMUNE COMPLEX MEDIATED REACTION [None]
  - IDIOSYNCRATIC DRUG REACTION [None]
  - DEAFNESS NEUROSENSORY [None]
  - VESTIBULAR DISORDER [None]
  - VASCULITIS [None]
